FAERS Safety Report 24531549 (Version 1)
Quarter: 2024Q4

REPORT INFORMATION
  Report Type: Report from Study
  Country: MX (occurrence: MX)
  Receive Date: 20241022
  Receipt Date: 20241022
  Transmission Date: 20250115
  Serious: No
  Sender: ROCHE
  Company Number: MX-ROCHE-3511618

PATIENT
  Age: 7 Month
  Sex: Male
  Weight: 10.8 kg

DRUGS (2)
  1. PULMOZYME [Suspect]
     Active Substance: DORNASE ALFA
     Indication: Cystic fibrosis
     Dosage: DOSE: 1 AMPOULE
     Route: 055
     Dates: start: 202206
  2. PANCREATIN [Concomitant]
     Active Substance: PANCRELIPASE
     Dosage: 10 000 UNITS, 2 CAPSULES.
     Route: 048
     Dates: start: 202204

REACTIONS (3)
  - Off label use [Unknown]
  - Pseudomonas infection [Recovered/Resolved]
  - Body height decreased [Recovered/Resolved]

NARRATIVE: CASE EVENT DATE: 20220601
